FAERS Safety Report 19970844 (Version 1)
Quarter: 2021Q4

REPORT INFORMATION
  Report Type: Spontaneous
  Country: US (occurrence: US)
  Receive Date: 20211020
  Receipt Date: 20211020
  Transmission Date: 20220303
  Serious: No
  Sender: FDA-Public Use
  Company Number: US-AMGEN-USASP2021160499

PATIENT
  Sex: Female

DRUGS (1)
  1. EPOGEN [Suspect]
     Active Substance: ERYTHROPOIETIN
     Indication: Myelodysplastic syndrome
     Dosage: UNK
     Route: 065

REACTIONS (1)
  - Road traffic accident [Unknown]
